FAERS Safety Report 20673264 (Version 1)
Quarter: 2022Q2

REPORT INFORMATION
  Report Type: Spontaneous
  Country: US (occurrence: None)
  Receive Date: 20220403
  Receipt Date: 20220403
  Transmission Date: 20220720
  Serious: Yes (Death, Hospitalization)
  Sender: FDA-Public Use
  Company Number: None

PATIENT
  Age: 36 Year
  Sex: Male

DRUGS (1)
  1. HALOPERIDOL [Suspect]
     Active Substance: HALOPERIDOL
     Indication: Bipolar disorder
     Dosage: FREQUENCY : ONCE;?
     Route: 048
     Dates: start: 20220114, end: 20220116

REACTIONS (2)
  - Seizure [None]
  - Tardive dyskinesia [None]

NARRATIVE: CASE EVENT DATE: 20220116
